FAERS Safety Report 21795350 (Version 1)
Quarter: 2022Q4

REPORT INFORMATION
  Report Type: Spontaneous
  Country: US (occurrence: US)
  Receive Date: 20221229
  Receipt Date: 20221229
  Transmission Date: 20230112
  Serious: Yes (Hospitalization)
  Sender: FDA-Public Use
  Company Number: US-BIOMARINAP-US-2022-147694

PATIENT

DRUGS (1)
  1. VIMIZIM [Suspect]
     Active Substance: ELOSULFASE ALFA
     Indication: Mucopolysaccharidosis IV
     Dosage: 110 MILLIGRAM, QW
     Route: 042
     Dates: start: 202206

REACTIONS (1)
  - Hip surgery [Unknown]

NARRATIVE: CASE EVENT DATE: 20221201
